FAERS Safety Report 21223608 (Version 2)
Quarter: 2022Q3

REPORT INFORMATION
  Report Type: Spontaneous
  Country: PL (occurrence: PL)
  Receive Date: 20220817
  Receipt Date: 20220818
  Transmission Date: 20221027
  Serious: Yes (Other)
  Sender: FDA-Public Use
  Company Number: PL-002147023-NVSC2022PL178381

PATIENT
  Sex: Female

DRUGS (4)
  1. CYTARABINE [Suspect]
     Active Substance: CYTARABINE
     Indication: Product used for unknown indication
  2. DASATINIB [Suspect]
     Active Substance: DASATINIB
     Indication: Product used for unknown indication
  3. PONATINIB [Concomitant]
     Active Substance: PONATINIB
     Indication: Product used for unknown indication
  4. AZACITIDINE [Concomitant]
     Active Substance: AZACITIDINE
     Indication: Product used for unknown indication

REACTIONS (2)
  - Cytogenetic analysis abnormal [Unknown]
  - Neoplasm recurrence [Unknown]

NARRATIVE: CASE EVENT DATE: 20220701
